FAERS Safety Report 24251486 (Version 1)
Quarter: 2024Q3

REPORT INFORMATION
  Report Type: Report from Study
  Country: DE (occurrence: DE)
  Receive Date: 20240826
  Receipt Date: 20240826
  Transmission Date: 20241017
  Serious: Yes (Other)
  Sender: ABBVIE
  Company Number: DE-JNJFOC-20240854382

PATIENT
  Age: 71 Year
  Sex: Female

DRUGS (1)
  1. IBRUTINIB [Suspect]
     Active Substance: IBRUTINIB
     Indication: Lymphocytic lymphoma
     Route: 048
     Dates: start: 20240126

REACTIONS (2)
  - Leukopenia [Not Recovered/Not Resolved]
  - Iron deficiency [Recovering/Resolving]

NARRATIVE: CASE EVENT DATE: 20240617
